FAERS Safety Report 8094594-5 (Version None)
Quarter: 2012Q1

REPORT INFORMATION
  Report Type: 
  Country: None (occurrence: None)
  Receive Date: 20120126
  Receipt Date: 20120119
  Transmission Date: 20120608
  Serious: Yes (Hospitalization)
  Sender: FDA-Public Use
  Company Number: AUR-APL-2012-00627

PATIENT
  Sex: Female

DRUGS (7)
  1. HYDROCHLOROTHIAZIDE [Suspect]
     Indication: ESSENTIAL HYPERTENSION
     Dosage: (1 D), ORAL
     Route: 048
     Dates: start: 20100101, end: 20110503
  2. PAROXETINE HCL [Suspect]
     Indication: MAJOR DEPRESSION
     Dosage: 20 MG (20 MG, 1 IN 1 D), ORAL
     Route: 048
     Dates: start: 20110423, end: 20110503
  3. VYTORIN [Suspect]
     Indication: HYPERCHOLESTEROLAEMIA
     Dosage: (1 D), ORAL
     Route: 048
     Dates: start: 20100101, end: 20110503
  4. DELORAZEPAM (DELORAZEPAM) [Suspect]
     Indication: MAJOR DEPRESSION
     Dosage: 1 MG (1 MG, 1 IN 1 D), ORAL
     Route: 048
     Dates: start: 20100101, end: 20110503
  5. RAMIPRIL [Suspect]
     Indication: ESSENTIAL HYPERTENSION
     Dosage: (1 D), ORAL
     Route: 048
     Dates: start: 20100101, end: 20110503
  6. FEXOFENADINE HCL [Suspect]
     Indication: HYPERSENSITIVITY
     Dosage: 120 MG (120 MG, 1 IN 1 D), ORAL
     Route: 048
     Dates: start: 20100101, end: 20110503
  7. ATENOLOL [Suspect]
     Indication: SECONDARY HYPERTENSION
     Dosage: 100 MG (100 MG, 1 IN 1 D), ORAL
     Route: 048
     Dates: start: 20100101, end: 20110503

REACTIONS (9)
  - BLOOD POTASSIUM DECREASED [None]
  - BLOOD CHLORIDE DECREASED [None]
  - BLOOD SODIUM DECREASED [None]
  - RETROGRADE AMNESIA [None]
  - SLOW RESPONSE TO STIMULI [None]
  - DISORIENTATION [None]
  - AGITATION [None]
  - MOTOR DYSFUNCTION [None]
  - ABNORMAL BEHAVIOUR [None]
